FAERS Safety Report 24432419 (Version 3)
Quarter: 2024Q4

REPORT INFORMATION
  Report Type: Spontaneous
  Country: ES (occurrence: ES)
  Receive Date: 20241014
  Receipt Date: 20241031
  Transmission Date: 20250115
  Serious: Yes (Life-Threatening, Hospitalization)
  Sender: TEVA
  Company Number: None

PATIENT
  Age: 70 Year
  Sex: Female

DRUGS (4)
  1. BISOPROLOL [Suspect]
     Active Substance: BISOPROLOL\BISOPROLOL FUMARATE
     Indication: Product used for unknown indication
     Dosage: 10 MG IN A SINGLE DOSE, 28 TABLETS
     Route: 048
     Dates: start: 20240509, end: 20240509
  2. ENALAPRIL [Concomitant]
     Active Substance: ENALAPRIL
     Indication: Product used for unknown indication
     Dosage: 1 EVERY 24 HOURS, ENALAPRIL CINFA EFG, 28 TABLETS
     Route: 048
     Dates: start: 20230118
  3. EZETIMIBA SIMVASTATINA [Concomitant]
     Indication: Product used for unknown indication
     Dosage: EZETIMIBA SIMVASTATINA ALTER 10 MG/20 MG EFG, 28 TABLETS, 1 EVERY 24 HOURS
     Route: 048
     Dates: start: 20221110
  4. AMIODARONE HYDROCHLORIDE [Suspect]
     Active Substance: AMIODARONE HYDROCHLORIDE
     Indication: Product used for unknown indication
     Dosage: BOLUS FOLLOWED BY IV INFUSION, 150 MG / 3 ML. 6 AMPOULES OF 3 ML
     Route: 042
     Dates: start: 20240509, end: 20240509

REACTIONS (2)
  - Bradycardia [Recovered/Resolved]
  - Electrocardiogram QT prolonged [Recovered/Resolved]

NARRATIVE: CASE EVENT DATE: 20240509
